FAERS Safety Report 4965370-4 (Version None)
Quarter: 2006Q2

REPORT INFORMATION
  Report Type: 
  Country: None (occurrence: None)
  Receive Date: 20060406
  Receipt Date: 20060227
  Transmission Date: 20061013
  Serious: Yes (Hospitalization)
  Sender: FDA-Public Use
  Company Number: US-MERCK-0602USA05928

PATIENT
  Age: 67 Year
  Sex: Female
  Weight: 71 kg

DRUGS (25)
  1. VIOXX [Suspect]
     Indication: BACK PAIN
     Route: 048
     Dates: start: 19990101, end: 20040930
  2. VIOXX [Suspect]
     Route: 048
     Dates: start: 19990101, end: 20040930
  3. VIOXX [Suspect]
     Indication: ARTHRALGIA
     Route: 048
     Dates: start: 19990101, end: 20040930
  4. VIOXX [Suspect]
     Route: 048
     Dates: start: 19990101, end: 20040930
  5. PREMARIN [Concomitant]
     Route: 065
  6. PROZAC [Concomitant]
     Route: 065
  7. EFFEXOR [Concomitant]
     Route: 065
  8. NEURONTIN [Concomitant]
     Route: 065
  9. LIPITOR [Concomitant]
     Route: 065
  10. NEXIUM [Concomitant]
     Route: 065
  11. WELLBUTRIN [Concomitant]
     Route: 065
  12. ALPRAZOLAM [Concomitant]
     Route: 065
  13. ALLEGRA [Concomitant]
     Route: 065
  14. IBUPROFEN [Concomitant]
     Route: 065
  15. LEVAQUIN [Concomitant]
     Route: 065
  16. HUMIBID [Concomitant]
     Route: 065
  17. LISINOPRIL [Concomitant]
     Route: 065
  18. KETOPROFEN [Concomitant]
     Route: 065
  19. ULTRACET [Concomitant]
     Route: 065
  20. ADVAIR DISKUS 100/50 [Concomitant]
     Route: 065
  21. CLOTRIMAZOLE [Concomitant]
     Route: 065
  22. PREDNISONE [Concomitant]
     Route: 065
  23. CARISOPRODOL [Concomitant]
     Route: 065
  24. ZITHROMAX [Concomitant]
     Route: 065
  25. FLUCONAZOLE [Concomitant]
     Route: 065

REACTIONS (2)
  - BACK DISORDER [None]
  - CEREBROVASCULAR ACCIDENT [None]
